FAERS Safety Report 5639436-X (Version None)
Quarter: 2008Q1

REPORT INFORMATION
  Report Type: 
  Country: None (occurrence: None)
  Receive Date: 20080226
  Receipt Date: 20080215
  Transmission Date: 20080703
  Serious: Yes (Other)
  Sender: FDA-Public Use
  Company Number: MY-PFIZER INC-2008014549

PATIENT
  Age: 58 Year
  Sex: Male

DRUGS (1)
  1. SUTENT [Suspect]
     Indication: RENAL CELL CARCINOMA
     Route: 048

REACTIONS (5)
  - ABDOMINAL DISTENSION [None]
  - ANOREXIA [None]
  - EPISTAXIS [None]
  - FATIGUE [None]
  - WOUND [None]
